FAERS Safety Report 9187021 (Version 2)
Quarter: 2012Q4

REPORT INFORMATION
  Report Type: 
  Country: GB (occurrence: GB)
  Receive Date: 20121031
  Receipt Date: 20121031
  Transmission Date: 20130627
  Serious: Yes (Hospitalization)
  Sender: FDA-Public Use
  Company Number: GB-MPIJNJ-2011-04085

PATIENT

DRUGS (9)
  1. VELCADE [Suspect]
     Indication: MULTIPLE MYELOMA
     Dosage: 1 mg/m2, Cyclic
     Route: 042
     Dates: start: 20110705, end: 20110929
  2. DOXORUBICIN [Suspect]
     Indication: MULTIPLE MYELOMA
     Dosage: 9 mg/m2, Cyclic
     Route: 042
     Dates: start: 20110705, end: 20110929
  3. DEXAMETHASONE [Suspect]
     Indication: MULTIPLE MYELOMA
     Dosage: 40 mg, Cyclic
     Route: 048
     Dates: start: 20110705, end: 20110929
  4. PARACETAMOL [Concomitant]
     Route: 065
  5. MOVICOL [Concomitant]
     Route: 065
  6. RANITIDINE [Concomitant]
     Route: 065
  7. CO-TRIMOXAZOLE [Concomitant]
     Route: 065
  8. ACICLOVIR [Concomitant]
     Route: 065
  9. ALLOPURINOL [Concomitant]
     Route: 065

REACTIONS (1)
  - Transfusion reaction [Recovered/Resolved]
